FAERS Safety Report 21410751 (Version 2)
Quarter: 2022Q4

REPORT INFORMATION
  Report Type: Report from Study
  Country: US (occurrence: US)
  Receive Date: 20221005
  Receipt Date: 20221213
  Transmission Date: 20230112
  Serious: No
  Sender: FDA-Public Use
  Company Number: US-TAKEDA-2022TUS070839

PATIENT
  Age: 7 Year
  Sex: Female

DRUGS (1)
  1. HUMAN IMMUNOGLOBULIN G [Suspect]
     Active Substance: HUMAN IMMUNOGLOBULIN G
     Indication: Product used for unknown indication
     Dosage: 7 GRAM, Q2WEEKS
     Route: 058
     Dates: start: 20220930

REACTIONS (4)
  - Swelling [Recovered/Resolved]
  - Fatigue [Recovered/Resolved]
  - Infusion site irritation [Recovered/Resolved]
  - Infusion site mass [Recovered/Resolved]

NARRATIVE: CASE EVENT DATE: 20221209
